FAERS Safety Report 6326646-1 (Version None)
Quarter: 2009Q3

REPORT INFORMATION
  Report Type: 
  Country: None (occurrence: None)
  Receive Date: 20090825
  Receipt Date: 20090706
  Transmission Date: 20100115
  Serious: No
  Sender: FDA-Public Use
  Company Number: US-BAYER-200925665NA

PATIENT
  Age: 23 Year
  Sex: Female
  Weight: 61 kg

DRUGS (1)
  1. MIRENA [Suspect]
     Indication: CONTRACEPTION
     Dosage: CONTINUOUS
     Route: 015
     Dates: start: 20071213

REACTIONS (6)
  - ABDOMINAL PAIN [None]
  - ABDOMINAL PAIN LOWER [None]
  - AMENORRHOEA [None]
  - DYSPAREUNIA [None]
  - HYPOMENORRHOEA [None]
  - IUCD COMPLICATION [None]
